FAERS Safety Report 19000667 (Version 2)
Quarter: 2021Q2

REPORT INFORMATION
  Report Type: Report from Study
  Country: JP (occurrence: JP)
  Receive Date: 20210312
  Receipt Date: 20210409
  Transmission Date: 20210717
  Serious: Yes (Hospitalization, Other)
  Sender: FDA-Public Use
  Company Number: JP-BRISTOL-MYERS SQUIBB COMPANY-BMS-2020-110816

PATIENT
  Age: 72 Year
  Sex: Male
  Weight: 53.5 kg

DRUGS (37)
  1. LENVATINIB [Suspect]
     Active Substance: LENVATINIB
     Dosage: 8 MILLIGRAM, QD
     Route: 048
     Dates: start: 20210209, end: 20210218
  2. THYRADIN S [Concomitant]
     Active Substance: LEVOTHYROXINE SODIUM
     Indication: ANAPLASTIC THYROID CANCER
     Dosage: 100 MILLIGRAM, QD
     Route: 048
     Dates: start: 20201027
  3. LENVATINIB [Suspect]
     Active Substance: LENVATINIB
     Dosage: 10 MILLIGRAM, QD
     Route: 065
     Dates: start: 20201229, end: 20210118
  4. LENVATINIB [Suspect]
     Active Substance: LENVATINIB
     Dosage: 14 MILLIGRAM, QD
     Route: 065
     Dates: start: 20201124, end: 20201219
  5. CALCIUM LACTATE [Suspect]
     Active Substance: CALCIUM LACTATE
     Dosage: 2 GRAM, Q12H
     Route: 048
     Dates: start: 20201224, end: 20210125
  6. L?CARBOCISTEINE [Concomitant]
     Active Substance: CARBOCYSTEINE
     Indication: SPUTUM INCREASED
  7. GLYCEROL [Concomitant]
     Active Substance: GLYCERIN
     Indication: BRAIN OEDEMA
     Dosage: 200 MILLILITER, Q12H
     Route: 065
     Dates: start: 20210303, end: 20210319
  8. NIVOLUMAB [Suspect]
     Active Substance: NIVOLUMAB
     Dosage: 240 MILLIGRAM, Q2WK
     Route: 041
     Dates: start: 20201124, end: 20210108
  9. LENVATINIB [Suspect]
     Active Substance: LENVATINIB
     Indication: ANAPLASTIC THYROID CANCER
     Dosage: 24 MILLIGRAM, QD
     Route: 065
     Dates: start: 20200915, end: 20201026
  10. L?CARBOCISTEINE [Concomitant]
     Active Substance: CARBOCYSTEINE
     Indication: SPUTUM RETENTION
     Dosage: 500 MILLIGRAM, Q8H
     Route: 048
     Dates: start: 20200915, end: 20210323
  11. HEPARINOID [Concomitant]
     Active Substance: CHONDROITIN SULFATE (BOVINE)
     Indication: DRY SKIN PROPHYLAXIS
     Dosage: ADEQUATE DOSE, PRN
     Route: 061
     Dates: start: 20200916
  12. MAGNESIUM OXIDE. [Concomitant]
     Active Substance: MAGNESIUM OXIDE
     Indication: CONSTIPATION
     Dosage: 330 MILLIGRAM, Q8H
     Route: 048
     Dates: start: 20201116
  13. NIVOLUMAB [Suspect]
     Active Substance: NIVOLUMAB
     Dosage: 240 MILLIGRAM, Q2WK
     Route: 041
     Dates: start: 20201030
  14. ALFACALCIDOL [Suspect]
     Active Substance: ALFACALCIDOL
     Dosage: 2 MICROGRAM, QD
     Route: 048
     Dates: start: 20201118, end: 20201219
  15. CALCIUM LACTATE [Suspect]
     Active Substance: CALCIUM LACTATE
     Dosage: 2 GRAM, Q12H
     Route: 048
     Dates: start: 20210216, end: 20210228
  16. CARDENALIN [Concomitant]
     Active Substance: DOXAZOSIN MESYLATE
     Indication: HYPERTENSION
     Dosage: 4 MILLIGRAM EVERYDAY
     Route: 048
     Dates: start: 20200928
  17. CALONAL [Concomitant]
     Active Substance: ACETAMINOPHEN
     Indication: PAIN
     Dosage: 600 MILLIGRAM, Q8H
     Route: 065
     Dates: start: 20210305, end: 20210324
  18. DEXTROMETHORPHAN HYDROBROMIDE. [Concomitant]
     Active Substance: DEXTROMETHORPHAN HYDROBROMIDE
     Indication: COUGH
     Dosage: 15 MILLIGRAM, Q8H
     Route: 065
     Dates: start: 20201223, end: 20210323
  19. NIVOLUMAB [Suspect]
     Active Substance: NIVOLUMAB
     Dosage: UNK
     Route: 041
     Dates: start: 20210119, end: 20210202
  20. ZOLPIDEM TARTRATE. [Concomitant]
     Active Substance: ZOLPIDEM TARTRATE
     Indication: INSOMNIA
     Dosage: 5 MILLIGRAM
     Route: 048
     Dates: start: 20200914
  21. AMLODIPINE [Concomitant]
     Active Substance: AMLODIPINE BESYLATE
     Indication: HYPERTENSION
     Dosage: 5 MILLIGRAM, QD
     Route: 048
     Dates: start: 20201124
  22. WHITE PETROLATUM [Concomitant]
     Active Substance: PETROLATUM
     Indication: ERYTHEMA
     Dosage: UNK, PRN
     Route: 061
     Dates: start: 20201204
  23. ASPARA POTASSIUM [Concomitant]
     Active Substance: POTASSIUM ASPARTATE
     Indication: PROPHYLAXIS
     Dosage: 300 MILLIGRAM, Q8H
     Route: 048
     Dates: start: 20201124, end: 20201223
  24. ASPARA POTASSIUM [Concomitant]
     Active Substance: POTASSIUM ASPARTATE
     Dosage: UNK
     Route: 048
     Dates: start: 20201224
  25. NIVOLUMAB [Suspect]
     Active Substance: NIVOLUMAB
     Indication: ANAPLASTIC THYROID CANCER
     Dosage: 240 MILLIGRAM, Q2WK
     Route: 041
     Dates: start: 20200915
  26. ALFACALCIDOL [Suspect]
     Active Substance: ALFACALCIDOL
     Indication: HYPOCALCAEMIA
     Dosage: 2 MICROGRAM EVERYDAY
     Route: 048
     Dates: start: 20200915, end: 20201109
  27. ALFACALCIDOL [Suspect]
     Active Substance: ALFACALCIDOL
     Dosage: 2 MICROGRAM, QD
     Route: 048
     Dates: start: 20201224, end: 20210125
  28. CALCIUM LACTATE [Suspect]
     Active Substance: CALCIUM LACTATE
     Indication: HYPOCALCAEMIA
     Dosage: 2 GRAM, Q12H
     Route: 048
     Dates: end: 20201109
  29. CALCIUM LACTATE [Suspect]
     Active Substance: CALCIUM LACTATE
     Dosage: 2 GRAM, Q12H
     Route: 048
     Dates: start: 20201118, end: 20201219
  30. OPSO [Concomitant]
     Active Substance: MORPHINE HYDROCHLORIDE
     Indication: COUGH
     Dosage: 5 MILLIGRAM, PRN
     Route: 048
     Dates: start: 20200925
  31. CARBAZOCHROME SODIUM SULFONATE [Concomitant]
     Active Substance: CARBAZOCHROME SODIUM SULFONATE
     Indication: HAEMOPTYSIS
     Dosage: 30 MILLIGRAM, Q8H
     Route: 048
     Dates: start: 20201208
  32. NEOLAMIN 3B [CYANOCOBALAMIN;PYRIDOXINE HYDROCHLORIDE;RIBOFLAVIN;THIAMI [Concomitant]
     Indication: PRODUCT USED FOR UNKNOWN INDICATION
     Dosage: 10 MILLILITER, QD
     Route: 065
     Dates: start: 20210303, end: 20210325
  33. BISOLVON [BROMHEXINE HYDROCHLORIDE] [Concomitant]
     Indication: SPUTUM INCREASED
     Dosage: 4 MILLIGRAM, Q8H
     Route: 065
     Dates: start: 20210119, end: 20210323
  34. LENVATINIB [Suspect]
     Active Substance: LENVATINIB
     Dosage: 20 MILLIGRAM, QD
     Route: 065
     Dates: start: 20201030, end: 20201109
  35. ALFACALCIDOL [Suspect]
     Active Substance: ALFACALCIDOL
     Dosage: 2 MICROGRAM, QD
     Route: 048
     Dates: start: 20210202, end: 20210228
  36. OLMESARTAN OD [Concomitant]
     Active Substance: OLMESARTAN MEDOXOMIL
     Indication: HYPERTENSION
     Dosage: 40 MILLIGRAM
     Route: 048
  37. WHITE PETROLATUM [Concomitant]
     Active Substance: PETROLATUM
     Indication: DRY SKIN PROPHYLAXIS
     Dosage: APPROPRIATE AMOUNT, PRN
     Route: 061
     Dates: start: 20210304

REACTIONS (4)
  - Decreased appetite [Recovered/Resolved]
  - Malaise [Recovering/Resolving]
  - Hypercalcaemia [Not Recovered/Not Resolved]
  - Hepatic function abnormal [Not Recovered/Not Resolved]

NARRATIVE: CASE EVENT DATE: 20201217
